FAERS Safety Report 18331039 (Version 2)
Quarter: 2020Q4

REPORT INFORMATION
  Report Type: Spontaneous
  Country: US (occurrence: US)
  Receive Date: 20200930
  Receipt Date: 20201013
  Transmission Date: 20210113
  Serious: Yes (Other)
  Sender: FDA-Public Use
  Company Number: US-GLENMARK PHARMACEUTICALS-2020GMK049717

PATIENT

DRUGS (1)
  1. CLOBETASOL PROPIONATE FOAM, 0.05% [Suspect]
     Active Substance: CLOBETASOL PROPIONATE
     Indication: PSORIASIS
     Dosage: UNK
     Route: 061
     Dates: start: 2008

REACTIONS (2)
  - Breath alcohol test positive [Unknown]
  - Alcohol test false positive [Unknown]

NARRATIVE: CASE EVENT DATE: 20200824
